FAERS Safety Report 16108465 (Version 2)
Quarter: 2019Q2

REPORT INFORMATION
  Report Type: Report from Study
  Country: None (occurrence: US)
  Receive Date: 20190323
  Receipt Date: 20190523
  Transmission Date: 20190711
  Serious: Yes (Other)
  Sender: FDA-Public Use
  Company Number: US-ABBVIE-19K-163-2614176-00

PATIENT
  Sex: Female

DRUGS (1)
  1. HUMIRA [Suspect]
     Active Substance: ADALIMUMAB
     Indication: CROHN^S DISEASE
     Route: 058

REACTIONS (8)
  - Fibromyalgia [Unknown]
  - Pain in extremity [Unknown]
  - Injection site pain [Unknown]
  - Systemic lupus erythematosus disease activity index increased [Unknown]
  - Bone pain [Unknown]
  - Arthralgia [Unknown]
  - Drug ineffective [Unknown]
  - Spinal osteoarthritis [Unknown]
